FAERS Safety Report 5152543-3 (Version None)
Quarter: 2006Q4

REPORT INFORMATION
  Report Type: 
  Country: None (occurrence: None)
  Receive Date: 20061109
  Receipt Date: 20061101
  Transmission Date: 20070319
  Serious: Yes (Hospitalization, Other)
  Sender: FDA-Public Use
  Company Number: 163-21880-06080017

PATIENT
  Sex: Female

DRUGS (5)
  1. REVLIMID [Suspect]
     Indication: MYELODYSPLASTIC SYNDROME
     Dosage: 5 MG, 1 IN 1 D, ORAL; 10 MG, DAILY X 5 WEEKS, ORAL
     Route: 048
     Dates: start: 20060524, end: 20060721
  2. REVLIMID [Suspect]
     Indication: MYELODYSPLASTIC SYNDROME
     Dosage: 5 MG, 1 IN 1 D, ORAL; 10 MG, DAILY X 5 WEEKS, ORAL
     Route: 048
     Dates: start: 20060801
  3. BENAZEPRIL (BENAZEPRIL) [Concomitant]
  4. LEVOTHYROXINE SODIUM [Concomitant]
  5. PREMARIN [Concomitant]

REACTIONS (4)
  - DIVERTICULUM [None]
  - LABORATORY TEST ABNORMAL [None]
  - LARGE INTESTINAL ULCER [None]
  - RECTAL HAEMORRHAGE [None]
